FAERS Safety Report 18100082 (Version 2)
Quarter: 2020Q3

REPORT INFORMATION
  Report Type: Report from Study
  Country: FR (occurrence: FR)
  Receive Date: 20200731
  Receipt Date: 20200811
  Transmission Date: 20201103
  Serious: Yes (Hospitalization)
  Sender: FDA-Public Use
  Company Number: FR-CELGENEUS-FRA-20200707325

PATIENT
  Age: 71 Year
  Sex: Male
  Weight: 62 kg

DRUGS (17)
  1. AG?221 [Suspect]
     Active Substance: ENASIDENIB
     Indication: MYELODYSPLASTIC SYNDROME
     Dosage: UNKNOWN
     Route: 048
     Dates: start: 20200624, end: 20200710
  2. AMOXICILLIN. [Concomitant]
     Active Substance: AMOXICILLIN
     Indication: CHOLECYSTITIS
     Dosage: 3 MILLIGRAM
     Route: 048
     Dates: start: 20200701
  3. NICOPATCH [Concomitant]
     Active Substance: NICOTINE
     Indication: TOBACCO USER
     Dosage: 21 MILLIGRAM
     Route: 062
  4. CIFLOX [Concomitant]
     Active Substance: CIPROFLOXACIN
     Indication: CHOLECYSTITIS
     Dosage: 1 GRAM
     Route: 048
     Dates: start: 20200701
  5. ACIDE ACETYLSALICYLIQUE [Concomitant]
     Active Substance: ASPIRIN
     Indication: ARTERIAL DISORDER
     Dosage: 100 MILLIGRAM
     Route: 048
     Dates: start: 2018
  6. ZOPICLONE [Concomitant]
     Active Substance: ZOPICLONE
     Indication: INSOMNIA
     Dosage: 7.5 MILLIGRAM
     Route: 048
     Dates: start: 2020
  7. BINOCRIT [Concomitant]
     Active Substance: ERYTHROPOIETIN
     Indication: ACUTE KIDNEY INJURY
     Dosage: 60000 IU (INTERNATIONAL UNIT)
     Route: 065
     Dates: start: 20200127, end: 20200427
  8. MIANSERINE [Concomitant]
     Active Substance: MIANSERIN HYDROCHLORIDE
     Indication: DEPRESSION
     Dosage: 30 MILLIGRAM
     Route: 048
     Dates: start: 2010
  9. TIORFAN [Concomitant]
     Active Substance: RACECADOTRIL
     Indication: DIVERTICULITIS
     Dosage: 100 MILLIGRAM
     Route: 048
     Dates: start: 2010
  10. LANTUS [Concomitant]
     Active Substance: INSULIN GLARGINE
     Dosage: 8 UNITS
     Route: 058
  11. DOXYCYCLINE. [Concomitant]
     Active Substance: DOXYCYCLINE
     Indication: SECONDARY SYPHILIS
     Route: 065
  12. PLAVIX [Concomitant]
     Active Substance: CLOPIDOGREL BISULFATE
     Indication: ARTERIAL DISORDER
     Dosage: 75 MILLIGRAM
     Route: 048
     Dates: start: 2016
  13. SMECTA [Concomitant]
     Active Substance: MONTMORILLONITE
     Indication: DIVERTICULITIS
     Dosage: 6 GRAM
     Route: 048
     Dates: start: 2010
  14. AMLODIPINE [Concomitant]
     Active Substance: AMLODIPINE BESYLATE
     Indication: PRODUCT USED FOR UNKNOWN INDICATION
     Route: 065
  15. EXJADE [Concomitant]
     Active Substance: DEFERASIROX
     Indication: TRANSFUSION
     Dosage: 1440 MILLIGRAM
     Route: 048
     Dates: start: 20180328
  16. LANTUS [Concomitant]
     Active Substance: INSULIN GLARGINE
     Indication: TYPE 2 DIABETES MELLITUS
     Dosage: 18 IU (INTERNATIONAL UNIT)
     Route: 058
     Dates: start: 201508
  17. AMILOR [Concomitant]
     Indication: HYPERTENSION
     Dosage: 10 MILLIGRAM
     Route: 048
     Dates: start: 2010

REACTIONS (1)
  - Blood creatine increased [Recovered/Resolved]

NARRATIVE: CASE EVENT DATE: 20200706
